FAERS Safety Report 14628514 (Version 1)
Quarter: 2018Q1

REPORT INFORMATION
  Report Type: Spontaneous
  Country: GB (occurrence: GB)
  Receive Date: 20180313
  Receipt Date: 20180313
  Transmission Date: 20180509
  Serious: Yes (Disabling)
  Sender: FDA-Public Use
  Company Number: GB-TEVA-2018-GB-868014

PATIENT
  Age: 69 Year
  Sex: Female

DRUGS (14)
  1. CETIRIZINE [Concomitant]
     Active Substance: CETIRIZINE HYDROCHLORIDE
  2. OMEPRAZOLE. [Suspect]
     Active Substance: OMEPRAZOLE
     Route: 048
  3. KETOCONAZOLE. [Concomitant]
     Active Substance: KETOCONAZOLE
  4. CASSIA [Concomitant]
  5. PREGABALIN. [Concomitant]
     Active Substance: PREGABALIN
     Route: 048
  6. PARACETAMOL [Concomitant]
     Active Substance: ACETAMINOPHEN
  7. METOCLOPRAMIDE. [Concomitant]
     Active Substance: METOCLOPRAMIDE
  8. BISACODYL. [Concomitant]
     Active Substance: BISACODYL
  9. DIAZEPAM. [Concomitant]
     Active Substance: DIAZEPAM
  10. CHLORPROMAZINE. [Concomitant]
     Active Substance: CHLORPROMAZINE
  11. OXYCODONE [Suspect]
     Active Substance: OXYCODONE
     Dosage: 30 MILLIGRAM DAILY; UP TO SIX TIMES DAILY
     Route: 048
  12. NAPROXEN. [Suspect]
     Active Substance: NAPROXEN
     Dosage: 1000 MILLIGRAM DAILY;
     Route: 048
  13. TRAMADOL. [Concomitant]
     Active Substance: TRAMADOL
  14. CALCITRIOL. [Concomitant]
     Active Substance: CALCITRIOL
     Route: 061

REACTIONS (1)
  - Mouth ulceration [Not Recovered/Not Resolved]
